FAERS Safety Report 12736365 (Version 1)
Quarter: 2016Q3

REPORT INFORMATION
  Report Type: Spontaneous
  Country: US (occurrence: US)
  Receive Date: 20160913
  Receipt Date: 20160913
  Transmission Date: 20161109
  Serious: No
  Sender: FDA-Public Use
  Company Number: US-BAYER-2016-176390

PATIENT
  Age: 64 Year
  Sex: Male
  Weight: 70.3 kg

DRUGS (2)
  1. CLARITIN [Suspect]
     Active Substance: LORATADINE
     Dosage: 1 DF, UNK, START OVER 5 YEARS
     Route: 048
  2. SYNTHROID [Concomitant]
     Active Substance: LEVOTHYROXINE SODIUM

REACTIONS (3)
  - Headache [None]
  - Somnolence [None]
  - Muscle spasms [None]

NARRATIVE: CASE EVENT DATE: 20160906
